FAERS Safety Report 4938598-7 (Version None)
Quarter: 2006Q1

REPORT INFORMATION
  Report Type: 
  Country: None (occurrence: None)
  Receive Date: 20060306
  Receipt Date: 20060220
  Transmission Date: 20060701
  Serious: Yes (Hospitalization)
  Sender: FDA-Public Use
  Company Number: US200601001893

PATIENT
  Age: 77 Year
  Sex: Female
  Weight: 49.4 kg

DRUGS (3)
  1. FORTEO [Suspect]
     Indication: OSTEOPOROSIS
     Dosage: 20 UG, DAILY (1/D)
     Dates: start: 20050101
  2. STALEVO (CARBIDOPA, ENTACAPONE, LEVODOPA) [Concomitant]
  3. PERGOLIDE MESYLATE [Concomitant]

REACTIONS (6)
  - BRONCHITIS [None]
  - INJECTION SITE HAEMORRHAGE [None]
  - INJECTION SITE IRRITATION [None]
  - INJECTION SITE RASH [None]
  - PHARMACEUTICAL PRODUCT COMPLAINT [None]
  - VIRAL INFECTION [None]
